APPROVED DRUG PRODUCT: CHLORTHALIDONE
Active Ingredient: CHLORTHALIDONE
Strength: 50MG
Dosage Form/Route: TABLET;ORAL
Application: A213412 | Product #002 | TE Code: AB
Applicant: ALKEM LABORATORIES LTD
Approved: Feb 11, 2020 | RLD: No | RS: No | Type: RX